FAERS Safety Report 7958708-7 (Version None)
Quarter: 2011Q4

REPORT INFORMATION
  Report Type: 
  Country: None (occurrence: None)
  Receive Date: 20111206
  Receipt Date: 20111121
  Transmission Date: 20120403
  Serious: Yes (Other)
  Sender: FDA-Public Use
  Company Number: JP-TEVA-311742USA

PATIENT
  Sex: Female

DRUGS (5)
  1. TRIENTINE [Concomitant]
     Dosage: 7-8 CAPS/DAY
     Route: 048
     Dates: start: 20010201, end: 20100721
  2. ZINC ACETATE 25 MG + 50 MG CAPSULES [Suspect]
     Indication: HEPATO-LENTICULAR DEGENERATION
     Dosage: 150 MG/DAY (50 MG3X/DAY
     Route: 048
     Dates: start: 20100722, end: 20110608
  3. ZINC ACETATE 25 MG + 50 MG CAPSULES [Suspect]
     Dosage: 50 MG/DAY (50 MG 1X/DAY)
     Route: 048
     Dates: start: 20110609, end: 20110922
  4. TRIENTINE [Concomitant]
     Dosage: 6 CAPS /DAY
     Route: 048
     Dates: start: 20110609, end: 20110922
  5. LEVOFLOXACIN [Concomitant]
     Dosage: EED, EYE A PROPER QUANTITY
     Route: 047
     Dates: start: 20100823, end: 20110307

REACTIONS (1)
  - AMNESIA [None]
